FAERS Safety Report 4654641-7 (Version None)
Quarter: 2005Q2

REPORT INFORMATION
  Report Type: 
  Country: None (occurrence: None)
  Receive Date: 20050506
  Receipt Date: 20050330
  Transmission Date: 20051028
  Serious: Yes (Hospitalization, Other)
  Sender: FDA-Public Use
  Company Number: US-AMGEN-US124579

PATIENT
  Sex: Female
  Weight: 72.2 kg

DRUGS (14)
  1. ENBREL [Suspect]
     Indication: RHEUMATOID ARTHRITIS
     Route: 058
     Dates: start: 19991101, end: 20041214
  2. METHOTREXATE [Concomitant]
  3. SYNTHROID [Concomitant]
  4. FOSAMAX [Concomitant]
  5. TYLENOL (CAPLET) [Concomitant]
  6. VIOXX [Concomitant]
  7. TEMOVATE [Concomitant]
  8. NORVASC [Concomitant]
  9. ZETIA [Concomitant]
  10. ALLEGRA [Concomitant]
  11. BENADRYL [Concomitant]
  12. MULTI-VITAMINS [Concomitant]
  13. FISH OIL [Concomitant]
  14. HYDROCORTISONE [Concomitant]
     Route: 054

REACTIONS (1)
  - BREAST CANCER IN SITU [None]
